FAERS Safety Report 17991589 (Version 3)
Quarter: 2020Q3

REPORT INFORMATION
  Report Type: Report from Study
  Country: GB (occurrence: GB)
  Receive Date: 20200707
  Receipt Date: 20200727
  Transmission Date: 20201103
  Serious: Yes (Death, Life-Threatening, Hospitalization)
  Sender: FDA-Public Use
  Company Number: NVSC2020GB187020

PATIENT
  Age: 53 Year
  Sex: Female

DRUGS (8)
  1. PLACEBO [Suspect]
     Active Substance: UNSPECIFIED INGREDIENT
     Dosage: CODE NOT BROKEN
     Route: 042
     Dates: start: 20190730, end: 20190730
  2. BLINDED ACZ885 [Suspect]
     Active Substance: CANAKINUMAB
     Indication: HEPATITIS ALCOHOLIC
     Dosage: NO TREATMENT
     Route: 065
  3. BLINDED NO TREATMENT RECEIVED [Suspect]
     Active Substance: INVESTIGATIONAL PRODUCT
     Dosage: CODE NOT BROKEN
     Route: 042
     Dates: start: 20190730, end: 20190730
  4. PLACEBO [Suspect]
     Active Substance: UNSPECIFIED INGREDIENT
     Indication: HEPATITIS ALCOHOLIC
     Dosage: NO TREATMENT
     Route: 065
  5. BLINDED ACZ885 [Suspect]
     Active Substance: CANAKINUMAB
     Dosage: CODE NOT BROKEN
     Route: 042
     Dates: start: 20190730, end: 20190730
  6. BLINDED NO TREATMENT RECEIVED [Suspect]
     Active Substance: INVESTIGATIONAL PRODUCT
     Indication: HEPATITIS ALCOHOLIC
     Dosage: NO TREATMENT
     Route: 065
  7. BLINDED ACZ885 [Suspect]
     Active Substance: CANAKINUMAB
     Dosage: CODE NOT BROKEN
     Route: 042
     Dates: start: 20190730, end: 20190730
  8. BLINDED ACZ885 [Suspect]
     Active Substance: CANAKINUMAB
     Indication: HEPATITIS ALCOHOLIC
     Dosage: NO TREATMENT
     Route: 065

REACTIONS (11)
  - Acute respiratory distress syndrome [Fatal]
  - Soft tissue necrosis [Recovered/Resolved]
  - Acute kidney injury [Fatal]
  - Hypernatraemia [Recovered/Resolved]
  - Pneumonia aspiration [Recovered/Resolved]
  - Hypokalaemia [Fatal]
  - Skull fracture [Fatal]
  - Hepatic failure [Fatal]
  - Subarachnoid haemorrhage [Fatal]
  - Hypotension [Recovered/Resolved]
  - Haematoma [Fatal]

NARRATIVE: CASE EVENT DATE: 20190727
